FAERS Safety Report 8589281-0 (Version None)
Quarter: 2012Q3

REPORT INFORMATION
  Report Type: 
  Country: None (occurrence: None)
  Receive Date: 20120813
  Receipt Date: 20120801
  Transmission Date: 20120928
  Serious: Yes (Hospitalization)
  Sender: FDA-Public Use
  Company Number: US-BAYER-2012-079623

PATIENT
  Age: 32 Year
  Sex: Female

DRUGS (27)
  1. NEXIUM [Concomitant]
     Dosage: 40MG TABLETS TK 1 CAPSULE BID (TWICE DAILY) FOR 2 WEEKS THEN TAKE 1 CAPSULE QD FOR 2 WEEKS
     Route: 048
  2. COMBIVENT [Concomitant]
     Dosage: UNK UNK, AS NEEDED
     Dates: start: 20100718
  3. VITAMIN D [Concomitant]
     Dosage: 5000 IU, EVERY DAY
     Route: 048
     Dates: start: 20100718
  4. LUNESTA [Concomitant]
     Dosage: 3 MG, TAKE ONE AT QHS (BEDTIME)
     Route: 048
  5. SYMBICORT [Concomitant]
     Dosage: UNK UNK, AS NEEDED
     Dates: start: 20100718
  6. PROZAC [Concomitant]
     Dosage: 20 MG, EVERY DAY
     Route: 048
     Dates: start: 20100718
  7. YASMIN [Suspect]
     Dosage: UNK
     Dates: start: 20091201, end: 20100719
  8. LEVOXYL [Concomitant]
     Dosage: 0.088MG TABLETS TK 1 T D
     Route: 048
  9. SINGULAIR [Concomitant]
     Dosage: 10 MG, TAKE ONE TABLET DAILY
     Route: 048
  10. HYDROCODONE BITARTRATE AND ACETAMINOPHEN [Concomitant]
     Dosage: 5MG/325MG, TAKE 1-2 TABLET EVERY 4-6 HOURS AS NEEDED
     Route: 048
  11. AZITHROMYCIN [Concomitant]
     Dosage: 250 MG TABLETS, TAKE UTD (UNTIL DONE)
     Route: 048
  12. MIRTAZAPINE [Concomitant]
     Dosage: 30 MG TABLETS, TAKE 1 TABLET QHS
     Route: 048
  13. PROVENTIL [Concomitant]
     Dosage: 2 PUFFS AS NEEDED
     Route: 045
     Dates: start: 20100718
  14. ASCORBIC ACID [Concomitant]
     Dosage: 1000 MG, EVERY DAY
     Route: 048
     Dates: start: 20100718
  15. ZOFRAN [Concomitant]
     Dosage: 8 MG, 3 TIMES PER DAY AS NEEDED
     Route: 048
     Dates: start: 20100718
  16. NARCAN [Concomitant]
     Indication: DISORIENTATION
     Dosage: 2 MG, UNK
  17. NEXIUM [Concomitant]
     Dosage: UNK
  18. CLONAZEPAM [Concomitant]
     Dosage: 1 MG TABLETS, TAKE ONE TABLET QID
     Route: 048
  19. MELATONIN [Concomitant]
     Dosage: 3 MG, AT BEDTIME
     Route: 048
     Dates: start: 20100721
  20. TRAZODONE HYDROCHLORIDE [Concomitant]
     Dosage: 100-200 MG
  21. ALPRAZOLAM [Concomitant]
     Dosage: 1 MG TABLETS, TAKE ONE TABLET QID
     Route: 048
  22. TOPIRAMATE [Concomitant]
     Dosage: 50 MG TABLET TAKE ONE BID
     Route: 048
  23. XANAX [Concomitant]
     Dosage: 1 MG, 4 TIMES PER DAY
     Route: 048
     Dates: start: 20100718
  24. ROMAZICON [Concomitant]
     Dosage: UNK
  25. FLUCONAZOLE [Concomitant]
     Dosage: 150 MG TABLETS, TAKE ONE DAILY
     Route: 048
  26. PRISTIQ [Concomitant]
     Dosage: 50 MG TABLET TAKE 1 TABLET QD
     Route: 048
  27. TYLENOL [Concomitant]
     Dosage: 1000 MG, AS NEEDED
     Route: 048
     Dates: start: 20100718

REACTIONS (3)
  - DEEP VEIN THROMBOSIS [None]
  - INJURY [None]
  - PAIN [None]
